FAERS Safety Report 14282523 (Version 1)
Quarter: 2017Q4

REPORT INFORMATION
  Report Type: Spontaneous
  Country: US (occurrence: US)
  Receive Date: 20171213
  Receipt Date: 20171213
  Transmission Date: 20180321
  Serious: No
  Sender: FDA-Public Use
  Company Number: US-MALLINCKRODT-T201701056

PATIENT
  Sex: Female
  Weight: 70 kg

DRUGS (13)
  1. IBRANCE [Suspect]
     Active Substance: PALBOCICLIB
     Dosage: 75 MG, QD (TAKES WITH LETROZOLE FOR 21 DAYS OUT OF MONTH)
     Route: 048
     Dates: start: 2016, end: 201612
  2. FENTANYL TRANSDERMAL SYSTEM [Suspect]
     Active Substance: FENTANYL
     Dosage: 12 MCG/HR, UNK
     Route: 062
     Dates: start: 201701, end: 201701
  3. IBRANCE [Suspect]
     Active Substance: PALBOCICLIB
     Dosage: 100 MG
     Route: 048
  4. BISOPROLOL [Suspect]
     Active Substance: BISOPROLOL
     Indication: HYPERTENSION
     Dosage: 1 DF (1 TABLET - 2.5/6.5 MG), QD
     Route: 048
  5. BISOPROLOL [Suspect]
     Active Substance: BISOPROLOL
     Indication: DIURETIC THERAPY
  6. FENTANYL TRANSDERMAL SYSTEM [Suspect]
     Active Substance: FENTANYL
     Indication: PAIN
     Dosage: 25 MCG/HR, Q72HR
     Route: 062
     Dates: start: 20150825, end: 201701
  7. IBRANCE [Suspect]
     Active Substance: PALBOCICLIB
     Indication: BONE CANCER
     Dosage: 75 MG, QD (TAKES WITH LETROZOLE FOR 21 DAYS OUT OF MONTH)
     Route: 048
     Dates: start: 2015, end: 201610
  8. ALPRAZOLAM. [Concomitant]
     Active Substance: ALPRAZOLAM
     Indication: ANXIETY
     Dosage: 0.5 DF DURING THE DAY, PRN
     Route: 048
     Dates: start: 2015
  9. LETROZOLE. [Suspect]
     Active Substance: LETROZOLE
     Indication: BONE CANCER
     Dosage: 2.5 MG, QD
     Route: 065
     Dates: start: 2015
  10. SYNTHROID [Concomitant]
     Active Substance: LEVOTHYROXINE SODIUM
     Indication: HYPOTHYROIDISM
     Dosage: 50 ?G, QD
     Route: 048
  11. PANTOPRAZOLE SODIUM. [Concomitant]
     Active Substance: PANTOPRAZOLE SODIUM
     Indication: GASTROOESOPHAGEAL REFLUX DISEASE
  12. PANTOPRAZOLE SODIUM. [Concomitant]
     Active Substance: PANTOPRAZOLE SODIUM
     Indication: GASTRIC DISORDER
     Dosage: 40 MG, QHS
     Route: 065
     Dates: start: 2016
  13. ALPRAZOLAM. [Concomitant]
     Active Substance: ALPRAZOLAM
     Indication: NERVOUSNESS
     Dosage: 1 DF, QHS
     Route: 048
     Dates: start: 2015

REACTIONS (7)
  - White blood cell count decreased [Unknown]
  - Asthenia [Recovering/Resolving]
  - Application site erythema [Recovered/Resolved]
  - Pruritus [Recovered/Resolved]
  - Blood potassium decreased [Unknown]
  - Application site irritation [Unknown]
  - Product odour abnormal [Unknown]

NARRATIVE: CASE EVENT DATE: 2016
